FAERS Safety Report 23538619 (Version 1)
Quarter: 2024Q1

REPORT INFORMATION
  Report Type: Spontaneous
  Country: TW (occurrence: TW)
  Receive Date: 20240219
  Receipt Date: 20240219
  Transmission Date: 20240409
  Serious: Yes (Death)
  Sender: FDA-Public Use
  Company Number: TW-DSJP-DSJ-2024-107526

PATIENT
  Age: 58 Year
  Sex: Male

DRUGS (1)
  1. TRASTUZUMAB DERUXTECAN [Suspect]
     Active Substance: TRASTUZUMAB DERUXTECAN
     Indication: Lung neoplasm malignant
     Dosage: 100 MG, 2 VIAL/ONCE EVERY 3 WK
     Route: 042
     Dates: start: 20231222

REACTIONS (1)
  - Death [Fatal]

NARRATIVE: CASE EVENT DATE: 20240112
